FAERS Safety Report 6440173-2 (Version None)
Quarter: 2009Q4

REPORT INFORMATION
  Report Type: 
  Country: None (occurrence: None)
  Receive Date: 20091113
  Receipt Date: 20090623
  Transmission Date: 20100525
  Serious: No
  Sender: FDA-Public Use
  Company Number: A0793285A

PATIENT
  Age: 69 Year
  Sex: Male

DRUGS (5)
  1. CARVEDILOL [Suspect]
     Indication: HYPERTENSION
     Dosage: 12.5MG TWICE PER DAY
     Route: 048
     Dates: start: 20040101, end: 20040101
  2. MONOPRIL [Concomitant]
  3. THYROID MEDICATION [Concomitant]
  4. CENTRUM SILVER [Concomitant]
  5. VITAMINS [Concomitant]

REACTIONS (2)
  - DIZZINESS [None]
  - FATIGUE [None]
